FAERS Safety Report 5264426-9 (Version None)
Quarter: 2007Q1

REPORT INFORMATION
  Report Type: 
  Country: None (occurrence: None)
  Receive Date: 20070309
  Receipt Date: 20070227
  Transmission Date: 20070707
  Serious: Yes (Other)
  Sender: FDA-Public Use
  Company Number: 237407

PATIENT
  Age: 36 Year
  Sex: Female
  Weight: 87 kg

DRUGS (1)
  1. OMALIZUMAB(OMALIZUMAB) PWDR + SOLVENT,INJECTION SOLN, 150MG [Suspect]
     Indication: ASTHMA
     Dosage: SUBCUTANEOUS
     Route: 058

REACTIONS (1)
  - ANAPHYLACTIC REACTION [None]
